FAERS Safety Report 4965230-9 (Version None)
Quarter: 2006Q1

REPORT INFORMATION
  Report Type: 
  Country: None (occurrence: None)
  Receive Date: 20060201
  Receipt Date: 20051214
  Transmission Date: 20060701
  Serious: No
  Sender: FDA-Public Use
  Company Number: 2005PV005881

PATIENT
  Age: 51 Year
  Sex: Female
  Weight: 97.5234 kg

DRUGS (14)
  1. BYETTA [Suspect]
     Indication: DIABETES MELLITUS NON-INSULIN-DEPENDENT
     Dosage: 5 MCG; BID; SC
     Route: 058
     Dates: start: 20051116, end: 20051211
  2. BYETTA [Suspect]
     Indication: DIABETES MELLITUS NON-INSULIN-DEPENDENT
     Dosage: 5 MCG; BID; SC
     Route: 058
     Dates: start: 20051212
  3. NUPRIN COLD FORMULA [Suspect]
     Indication: INFLUENZA LIKE ILLNESS
     Dosage: 30 MG
     Dates: start: 20051208
  4. ANACIN [Suspect]
     Indication: INFLUENZA LIKE ILLNESS
     Dates: start: 20051205
  5. BENADRYL [Suspect]
     Indication: PRURITUS
     Dosage: PRN
     Dates: start: 20051205
  6. COUGH MEDICINE [Suspect]
     Indication: INFLUENZA LIKE ILLNESS
     Dates: start: 20051205
  7. METFORMIN [Concomitant]
  8. GLUCOTROL [Concomitant]
  9. WELLBUTRIN [Concomitant]
  10. ZOLOFT [Concomitant]
  11. PROTONIX [Concomitant]
  12. LIPITOR [Concomitant]
  13. ZETIA [Concomitant]
  14. LISINOPRIL [Concomitant]

REACTIONS (9)
  - BLOOD GLUCOSE INCREASED [None]
  - COUGH [None]
  - DRUG EFFECT DECREASED [None]
  - HEADACHE [None]
  - INFLUENZA LIKE ILLNESS [None]
  - INJECTION SITE BRUISING [None]
  - INJECTION SITE PAIN [None]
  - INJECTION SITE URTICARIA [None]
  - PAIN [None]
